FAERS Safety Report 16332648 (Version 19)
Quarter: 2025Q3

REPORT INFORMATION
  Report Type: Spontaneous
  Country: US (occurrence: US)
  Receive Date: 20190520
  Receipt Date: 20250724
  Transmission Date: 20251020
  Serious: Yes (Hospitalization, Other)
  Sender: PFIZER
  Company Number: US-PFIZER INC-2019210972

PATIENT
  Age: 66 Year
  Sex: Female
  Weight: 107.03 kg

DRUGS (2)
  1. XELJANZ XR [Suspect]
     Active Substance: TOFACITINIB CITRATE
     Indication: Rheumatoid arthritis
     Dosage: 11 MG, 1X/DAY
     Route: 048
     Dates: start: 20190115
  2. XELJANZ XR [Suspect]
     Active Substance: TOFACITINIB CITRATE
     Dosage: 11 MG, 1X/DAY
     Route: 048
     Dates: start: 202001, end: 202505

REACTIONS (7)
  - Pulmonary thrombosis [Unknown]
  - Nephrolithiasis [Unknown]
  - Cough [Unknown]
  - Rhinorrhoea [Unknown]
  - Influenza like illness [Unknown]
  - Somnolence [Unknown]
  - Malaise [Unknown]

NARRATIVE: CASE EVENT DATE: 20190101
